FAERS Safety Report 6345492-6 (Version None)
Quarter: 2009Q3

REPORT INFORMATION
  Report Type: 
  Country: None (occurrence: None)
  Receive Date: 20090909
  Receipt Date: 20090831
  Transmission Date: 20100115
  Serious: Yes (Life-Threatening)
  Sender: FDA-Public Use
  Company Number: CA-SOLVAY-00209004977

PATIENT
  Age: 41 Year
  Sex: Male
  Weight: 91 kg

DRUGS (7)
  1. AVEENO [Concomitant]
     Indication: DRUG USE FOR UNKNOWN INDICATION
     Dosage: DAILY DOSE:  UNKNOWN
     Route: 065
  2. COVERSYL TABLET 4 MG [Suspect]
     Indication: DRUG USE FOR UNKNOWN INDICATION
     Dosage: DAILY DOSE: 4 MILLIGRAM(S)
     Route: 048
  3. BRICANYL [Concomitant]
     Indication: DRUG USE FOR UNKNOWN INDICATION
     Dosage: DAILY DOSE:  UNKNOWN; 05. MG/AEM, TURBUHALER
     Route: 065
  4. LOTRIDERM [Concomitant]
     Indication: DRUG USE FOR UNKNOWN INDICATION
     Dosage: DAILY DOSE:  UNKNOWN
     Route: 065
  5. METROCREAM [Concomitant]
     Indication: DRUG USE FOR UNKNOWN INDICATION
     Dosage: DAILY DOSE:  UNKNOWN; CRM 0.75%
     Route: 065
  6. PANTOPRAZOLE SODIUM [Concomitant]
     Indication: DRUG USE FOR UNKNOWN INDICATION
     Dosage: DAILY DOSE:  UNKNOWN
     Route: 065
  7. REACTINE [Concomitant]
     Indication: DRUG USE FOR UNKNOWN INDICATION
     Dosage: DAILY DOSE:  UNKNOWN
     Route: 065

REACTIONS (6)
  - ARTHRALGIA [None]
  - ERYTHEMA MULTIFORME [None]
  - HEADACHE [None]
  - INFLUENZA LIKE ILLNESS [None]
  - PAROTID GLAND ENLARGEMENT [None]
  - PERIORBITAL OEDEMA [None]
